FAERS Safety Report 13731224 (Version 1)
Quarter: 2017Q3

REPORT INFORMATION
  Report Type: Spontaneous
  Country: US (occurrence: US)
  Receive Date: 20170707
  Receipt Date: 20170707
  Transmission Date: 20171127
  Serious: Yes (Death, Hospitalization)
  Sender: FDA-Public Use
  Company Number: US-LPDUSPRD-20170922

PATIENT
  Age: 66 Year
  Sex: Female

DRUGS (2)
  1. LIDOCAINE HCL INJECTION, USP (0517-9402-01) [Suspect]
     Active Substance: LIDOCAINE HYDROCHLORIDE
     Dosage: DOSE NOT PROVIDED
     Route: 065
  2. SODIUM THIOSULFATE INJECTION, USP (1019-05) [Suspect]
     Active Substance: SODIUM THIOSULFATE
     Dosage: DOSE NOT PROVIDED
     Route: 065

REACTIONS (5)
  - Cardio-respiratory arrest [Fatal]
  - Injection site abscess [None]
  - Multiple organ dysfunction syndrome [Fatal]
  - Skin lesion [Not Recovered/Not Resolved]
  - Abscess [Not Recovered/Not Resolved]
